FAERS Safety Report 25496186 (Version 1)
Quarter: 2025Q2

REPORT INFORMATION
  Report Type: Spontaneous
  Country: IR (occurrence: IR)
  Receive Date: 20250630
  Receipt Date: 20250630
  Transmission Date: 20250717
  Serious: Yes (Death, Other)
  Sender: CSL BEHRING
  Company Number: IR-BEH-2025210851

PATIENT

DRUGS (2)
  1. HUMAN IMMUNOGLOBULIN G [Suspect]
     Active Substance: HUMAN IMMUNOGLOBULIN G
     Indication: Foetal hypokinesia
     Dosage: 0.4 G/KG/DAY (5 DAYS)
     Route: 064
  2. DEXAMETHASONE [Suspect]
     Active Substance: DEXAMETHASONE
     Indication: Foetal hypokinesia
     Dosage: 6 MG/D
     Route: 064

REACTIONS (5)
  - Bradycardia foetal [Fatal]
  - Ascites [Fatal]
  - Drug ineffective for unapproved indication [Fatal]
  - Off label use [Unknown]
  - Foetal exposure during pregnancy [Unknown]
